FAERS Safety Report 9433677 (Version 1)
Quarter: 2013Q3

REPORT INFORMATION
  Report Type: Spontaneous
  Country: US (occurrence: US)
  Receive Date: 20130731
  Receipt Date: 20130731
  Transmission Date: 20140515
  Serious: Yes (Hospitalization, Other)
  Sender: FDA-Public Use
  Company Number: US-BAXTER-2013BAX029298

PATIENT
  Sex: 0

DRUGS (2)
  1. GAMMAGARD LIQUID [Suspect]
     Indication: PRIMARY IMMUNODEFICIENCY SYNDROME
     Route: 042
  2. GAMMAGARD LIQUID [Suspect]
     Route: 042

REACTIONS (7)
  - Coagulopathy [Unknown]
  - Trousseau^s sign [Unknown]
  - Blood magnesium decreased [Unknown]
  - Blood potassium decreased [Unknown]
  - Blood calcium decreased [Unknown]
  - Chest pain [Unknown]
  - Chest discomfort [Unknown]
